FAERS Safety Report 10596881 (Version 2)
Quarter: 2015Q2

REPORT INFORMATION
  Report Type: Spontaneous
  Country: FR (occurrence: FR)
  Receive Date: 20141120
  Receipt Date: 20150529
  Transmission Date: 20150821
  Serious: Yes (Hospitalization, Other)
  Sender: FDA-Public Use
  Company Number: FR-ASTRAZENECA-2014SE86637

PATIENT
  Age: 18144 Day
  Sex: Female

DRUGS (17)
  1. PREZISTA [Concomitant]
     Active Substance: DARUNAVIR ETHANOLATE
     Dates: start: 201404
  2. TRUVADA [Concomitant]
     Active Substance: EMTRICITABINE\TENOFOVIR DISOPROXIL FUMARATE
     Dates: start: 201404
  3. COLCHIMAX [Concomitant]
     Active Substance: COLCHICINE\DICYCLOMINE HYDROCHLORIDE
     Dates: start: 20141025
  4. NAPROXENE [Concomitant]
     Active Substance: NAPROXEN
     Dates: start: 20140828, end: 201409
  5. CEFTRIAXONE BASE [Suspect]
     Active Substance: CEFTRIAXONE
     Route: 042
     Dates: start: 20141017, end: 20141020
  6. COLCHIMAX [Concomitant]
     Active Substance: COLCHICINE\DICYCLOMINE HYDROCHLORIDE
     Dates: end: 201410
  7. SPASFON [Concomitant]
     Active Substance: PHLOROGLUCINOL
     Dosage: IF NEEDED
  8. INEXIUM [Suspect]
     Active Substance: ESOMEPRAZOLE
     Route: 048
     Dates: end: 20141022
  9. TIORFAN [Concomitant]
     Active Substance: RACECADOTRIL
     Dosage: IF NEEDED
  10. ISENTRESS [Concomitant]
     Active Substance: RALTEGRAVIR POTASSIUM
     Dates: start: 20140922
  11. LOVENOX [Concomitant]
     Active Substance: ENOXAPARIN SODIUM
     Dates: start: 20141003
  12. ZOLPIDEM [Concomitant]
     Active Substance: ZOLPIDEM\ZOLPIDEM TARTRATE
  13. NORVIR [Concomitant]
     Active Substance: RITONAVIR
     Dates: start: 201404
  14. ROVALCYTE [Concomitant]
     Active Substance: VALGANCICLOVIR HYDROCHLORIDE
     Dates: start: 20140925, end: 20141025
  15. SOLU-MEDROL [Suspect]
     Active Substance: METHYLPREDNISOLONE SODIUM SUCCINATE
     Route: 040
     Dates: start: 20141019, end: 20141021
  16. ACUPAN [Concomitant]
     Active Substance: NEFOPAM HYDROCHLORIDE
     Dosage: IF NEEDED
  17. UVEDOSE [Concomitant]
     Active Substance: CHOLECALCIFEROL
     Dosage: MONTHLY
     Dates: start: 20140922

REACTIONS (9)
  - Asthenia [Unknown]
  - Haemolytic anaemia [Recovering/Resolving]
  - Polyneuropathy [Unknown]
  - Aspartate aminotransferase increased [Unknown]
  - Alanine aminotransferase increased [Unknown]
  - Epstein-Barr virus infection [Unknown]
  - Gamma-glutamyltransferase increased [Unknown]
  - Mitochondrial cytopathy [Unknown]
  - Leukopenia [Unknown]

NARRATIVE: CASE EVENT DATE: 20141003
